FAERS Safety Report 20170179 (Version 1)
Quarter: 2021Q4

REPORT INFORMATION
  Report Type: Spontaneous
  Country: CN (occurrence: CN)
  Receive Date: 20211210
  Receipt Date: 20211210
  Transmission Date: 20220303
  Serious: Yes (Hospitalization, Disabling)
  Sender: FDA-Public Use
  Company Number: CN-NOVARTISPH-NVSC2021CN281300

PATIENT
  Age: 56 Year
  Sex: Male
  Weight: 63 kg

DRUGS (5)
  1. ROSUVASTATIN CALCIUM [Suspect]
     Active Substance: ROSUVASTATIN CALCIUM
     Indication: Lacunar infarction
     Dosage: 10 MG, QD
     Route: 048
     Dates: start: 20211108, end: 20211116
  2. CLOPIDOGREL BISULFATE [Suspect]
     Active Substance: CLOPIDOGREL BISULFATE
     Indication: Lacunar infarction
     Dosage: 75 MG, QD
     Route: 048
     Dates: start: 20211108, end: 20211116
  3. ACARBOSE [Suspect]
     Active Substance: ACARBOSE
     Indication: Type 2 diabetes mellitus
     Dosage: 0.1 G, TID
     Route: 048
     Dates: start: 20211108, end: 20211116
  4. GINKGO [Concomitant]
     Active Substance: GINKGO
     Indication: Lacunar infarction
     Dosage: 5 ML, QD
     Route: 042
     Dates: start: 20211108, end: 20211116
  5. ASPIRIN [Concomitant]
     Active Substance: ASPIRIN
     Indication: Lacunar infarction
     Dosage: 0.1 G, QD
     Route: 048
     Dates: start: 20211108, end: 20211116

REACTIONS (1)
  - Hepatic function abnormal [Unknown]

NARRATIVE: CASE EVENT DATE: 20211116
